FAERS Safety Report 23259197 (Version 1)
Quarter: 2023Q4

REPORT INFORMATION
  Report Type: Spontaneous
  Country: US (occurrence: None)
  Receive Date: 20231204
  Receipt Date: 20231204
  Transmission Date: 20240110
  Serious: Yes (Hospitalization)
  Sender: FDA-Public Use
  Company Number: None

PATIENT
  Age: 92 Year
  Sex: Male
  Weight: 72 kg

DRUGS (1)
  1. APIXABAN [Suspect]
     Active Substance: APIXABAN
     Dosage: 5 MG BID PO
     Route: 048
     Dates: start: 20181124

REACTIONS (2)
  - Haematoma [None]
  - Anaemia [None]

NARRATIVE: CASE EVENT DATE: 20230923
